FAERS Safety Report 25321606 (Version 2)
Quarter: 2025Q2

REPORT INFORMATION
  Report Type: Spontaneous
  Country: ES (occurrence: ES)
  Receive Date: 20250516
  Receipt Date: 20250528
  Transmission Date: 20250717
  Serious: Yes (Hospitalization, Other)
  Sender: ALKEM
  Company Number: None

PATIENT
  Age: 63 Year
  Sex: Female

DRUGS (3)
  1. MYCOPHENOLATE MOFETIL [Suspect]
     Active Substance: MYCOPHENOLATE MOFETIL
     Indication: Autoimmune hepatitis
     Route: 065
     Dates: start: 2017
  2. AZATHIOPRINE [Suspect]
     Active Substance: AZATHIOPRINE
     Indication: Autoimmune hepatitis
     Route: 065
     Dates: start: 2009
  3. BUDESONIDE [Concomitant]
     Active Substance: BUDESONIDE
     Indication: Autoimmune hepatitis
     Route: 065
     Dates: start: 2017

REACTIONS (3)
  - Epstein-Barr virus associated lymphoma [Recovering/Resolving]
  - Central nervous system lymphoma [Recovering/Resolving]
  - Therapy partial responder [Unknown]

NARRATIVE: CASE EVENT DATE: 20230101
